FAERS Safety Report 4910655-0 (Version None)
Quarter: 2006Q1

REPORT INFORMATION
  Report Type: 
  Country: None (occurrence: None)
  Receive Date: 20060210
  Receipt Date: 20060210
  Transmission Date: 20060701
  Serious: No
  Sender: FDA-Public Use
  Company Number: None

PATIENT
  Age: 23 Month
  Sex: Female

DRUGS (2)
  1. AMOXIL [Suspect]
     Dosage: ML 400/5 100 ML
  2. AUGMENTIN '125' [Suspect]
     Dosage: ML 400/5 100 ML

REACTIONS (3)
  - DRUG DISPENSING ERROR [None]
  - MEDICATION ERROR [None]
  - WRONG DRUG ADMINISTERED [None]
